FAERS Safety Report 8993147 (Version 2)
Quarter: 2013Q1

REPORT INFORMATION
  Report Type: Spontaneous
  Country: DE (occurrence: DE)
  Receive Date: 20130102
  Receipt Date: 20130118
  Transmission Date: 20140127
  Serious: Yes (Hospitalization, Other)
  Sender: FDA-Public Use
  Company Number: DE-ROCHE-1175043

PATIENT
  Age: 62 Year
  Sex: Male

DRUGS (7)
  1. ALTEPLASE [Suspect]
     Indication: THROMBOLYSIS
     Dosage: 2 INFUSIONS OF 50 MG, EACH GIVEN OVER 2 HOURS
     Route: 065
  2. UNFRACTIONATED HEPARIN [Suspect]
     Indication: THROMBOSIS
     Route: 042
  3. RIFAMPICIN [Concomitant]
     Indication: ACNE
     Route: 042
  4. DAPTOMYCIN [Concomitant]
     Indication: ACNE
     Route: 042
  5. PHENPROCOUMON [Concomitant]
     Indication: THROMBOSIS
     Route: 048
  6. AMOXICILLIN [Concomitant]
     Route: 048
  7. CLAVULANIC ACID [Concomitant]
     Route: 048

REACTIONS (4)
  - Pneumonia [Recovered/Resolved]
  - Pulmonary embolism [Recovered/Resolved]
  - Sepsis [Recovered/Resolved]
  - Bacteraemia [Recovered/Resolved]
